FAERS Safety Report 9719757 (Version 1)
Quarter: 2013Q4

REPORT INFORMATION
  Report Type: Spontaneous
  Country: RU (occurrence: RU)
  Receive Date: 20131128
  Receipt Date: 20131128
  Transmission Date: 20140711
  Serious: Yes (Other)
  Sender: FDA-Public Use
  Company Number: RU-ASTRAZENECA-2013SE85598

PATIENT
  Age: 56 Year
  Sex: Male

DRUGS (4)
  1. CRESTOR [Suspect]
     Route: 048
  2. BETALOC ZOK [Concomitant]
     Route: 048
  3. COPLAVIX [Concomitant]
     Route: 048
  4. PRESTANCE [Concomitant]
     Route: 048

REACTIONS (3)
  - Enterocolitis [Recovered/Resolved]
  - Polyneuropathy [Recovered/Resolved]
  - Transaminases increased [Recovered/Resolved]
